FAERS Safety Report 8299356 (Version 3)
Quarter: 2013Q1

REPORT INFORMATION
  Report Type: Report from Study
  Country: FR (occurrence: FR)
  Receive Date: 20111219
  Receipt Date: 20130308
  Transmission Date: 20140127
  Serious: Yes (Death, Hospitalization, Other)
  Sender: FDA-Public Use
  Company Number: FR-ROCHE-730102

PATIENT
  Sex: 0

DRUGS (1)
  1. RITUXIMAB [Suspect]
     Indication: RHEUMATOID ARTHRITIS
     Dosage: INFUSION
     Route: 065

REACTIONS (16)
  - Infection [Fatal]
  - Skin infection [Unknown]
  - Urinary tract infection [Unknown]
  - Gastrointestinal infection [Unknown]
  - Arthritis infective [Unknown]
  - Eye infection [Unknown]
  - Sepsis [Unknown]
  - Arthritis fungal [Unknown]
  - Bronchopneumonia [Unknown]
  - Rhinitis [Unknown]
  - Pharyngitis [Unknown]
  - Neoplasm malignant [Unknown]
  - Transitional cell carcinoma [Unknown]
  - Rectal cancer [Unknown]
  - Skin cancer [Unknown]
  - Hypoglobulinaemia [Unknown]
